FAERS Safety Report 6420688-3 (Version None)
Quarter: 2009Q4

REPORT INFORMATION
  Report Type: 
  Country: None (occurrence: None)
  Receive Date: 20091027
  Receipt Date: 20091006
  Transmission Date: 20100525
  Serious: Yes (Hospitalization)
  Sender: FDA-Public Use
  Company Number: 8053521

PATIENT
  Age: 28 Year
  Sex: Female
  Weight: 52.4 kg

DRUGS (3)
  1. CIMZIA [Suspect]
     Indication: CROHN'S DISEASE
     Dosage: 400 MG /M SC
     Route: 058
     Dates: start: 20081201, end: 20090327
  2. CIMZIA [Suspect]
     Indication: CROHN'S DISEASE
     Dosage: SC
     Route: 058
     Dates: start: 20090502, end: 20090502
  3. PREDNISONE [Concomitant]

REACTIONS (1)
  - INFLUENZA [None]
